FAERS Safety Report 18610353 (Version 2)
Quarter: 2021Q2

REPORT INFORMATION
  Report Type: Report from Study
  Country: JP (occurrence: JP)
  Receive Date: 20201214
  Receipt Date: 20210405
  Transmission Date: 20210717
  Serious: Yes (Other)
  Sender: FDA-Public Use
  Company Number: JP-VIIV HEALTHCARE LIMITED-JP2020JPN242580

PATIENT
  Age: 45 Year
  Sex: Male
  Weight: 70 kg

DRUGS (1)
  1. LAMIVUDINE. [Suspect]
     Active Substance: LAMIVUDINE
     Indication: HEPATITIS B
     Dosage: 100 MG, QD, AFTER BREAKFAST
     Route: 048
     Dates: start: 20040906, end: 20180508

REACTIONS (5)
  - Pathogen resistance [Unknown]
  - Hepatitis B [Recovering/Resolving]
  - Hepatitis B DNA increased [Unknown]
  - Therapeutic product effect incomplete [Unknown]
  - Drug resistance [Unknown]

NARRATIVE: CASE EVENT DATE: 20051118
